FAERS Safety Report 6594071-4 (Version None)
Quarter: 2010Q1

REPORT INFORMATION
  Report Type: 
  Country: None (occurrence: None)
  Receive Date: 20100222
  Receipt Date: 20100211
  Transmission Date: 20100710
  Serious: Yes (Hospitalization)
  Sender: FDA-Public Use
  Company Number: DE-ROCHE-638438

PATIENT
  Sex: Male
  Weight: 79 kg

DRUGS (4)
  1. AVASTIN [Suspect]
     Indication: COLON CANCER METASTATIC
     Dosage: LAST APPLICATION BEFORE ONSET OF EVENT ON 24 NOV 2008
     Route: 042
     Dates: start: 20081110
  2. IRINOTECAN HCL [Concomitant]
     Indication: COLON CANCER METASTATIC
     Route: 042
     Dates: start: 20080901, end: 20090301
  3. FOLINIC ACID [Concomitant]
     Indication: COLON CANCER METASTATIC
     Route: 042
     Dates: start: 20080901, end: 20090301
  4. FLUOROURACIL [Concomitant]
     Indication: COLON CANCER METASTATIC
     Dosage: 400 MG/M2 VIA BOLUS, 2400 MG/M2 VIA PUMP
     Route: 042
     Dates: start: 20080901, end: 20090301

REACTIONS (1)
  - TACHYARRHYTHMIA [None]
